FAERS Safety Report 12742823 (Version 1)
Quarter: 2016Q3

REPORT INFORMATION
  Report Type: Spontaneous
  Country: US (occurrence: US)
  Receive Date: 20160914
  Receipt Date: 20160914
  Transmission Date: 20161109
  Serious: Yes (Disabling)
  Sender: FDA-Public Use
  Company Number: None

PATIENT
  Age: 59 Year
  Sex: Male

DRUGS (2)
  1. ASPARTAME [Suspect]
     Active Substance: ASPARTAME
  2. LIPITOR [Suspect]
     Active Substance: ATORVASTATIN CALCIUM
     Indication: NEUROPATHY PERIPHERAL
     Dates: start: 20111217, end: 20160816

REACTIONS (3)
  - Neuropathy peripheral [None]
  - Drug hypersensitivity [None]
  - Food interaction [None]
